FAERS Safety Report 6090117-0 (Version None)
Quarter: 2009Q1

REPORT INFORMATION
  Report Type: 
  Country: None (occurrence: None)
  Receive Date: 20090220
  Receipt Date: 20090212
  Transmission Date: 20090719
  Serious: No
  Sender: FDA-Public Use
  Company Number: 20085995

PATIENT
  Sex: Male

DRUGS (1)
  1. LIORESAL [Suspect]
     Indication: MUSCLE SPASTICITY
     Dosage: 350 MCG, DAILY, INTRATHECAL
     Route: 037

REACTIONS (9)
  - DEVICE RELATED INFECTION [None]
  - ERYTHEMA [None]
  - HYPERTONIA [None]
  - INCORRECT DRUG ADMINISTRATION RATE [None]
  - PAIN [None]
  - STAPHYLOCOCCAL INFECTION [None]
  - SWELLING [None]
  - WOUND DEHISCENCE [None]
  - WOUND DRAINAGE [None]
